FAERS Safety Report 8613696-5 (Version None)
Quarter: 2012Q3

REPORT INFORMATION
  Report Type: 
  Country: None (occurrence: None)
  Receive Date: 20120823
  Receipt Date: 20120813
  Transmission Date: 20120928
  Serious: Yes (Hospitalization)
  Sender: FDA-Public Use
  Company Number: US-BIOGENIDEC-2012BI031999

PATIENT
  Age: 26 Year
  Sex: Female

DRUGS (1)
  1. TYSABRI [Suspect]
     Indication: MULTIPLE SCLEROSIS
     Route: 042
     Dates: start: 20100416

REACTIONS (8)
  - HYPOAESTHESIA [None]
  - DIZZINESS [None]
  - GAIT DISTURBANCE [None]
  - SCIATICA [None]
  - WEIGHT INCREASED [None]
  - TOOTH INFECTION [None]
  - BACK PAIN [None]
  - SYNCOPE [None]
